FAERS Safety Report 4300197-8 (Version None)
Quarter: 2004Q1

REPORT INFORMATION
  Report Type: 
  Country: None (occurrence: None)
  Receive Date: 20040218
  Receipt Date: 20040203
  Transmission Date: 20041129
  Serious: Yes (Hospitalization)
  Sender: FDA-Public Use
  Company Number: 2003AP04560

PATIENT
  Age: 66 Year
  Sex: Female

DRUGS (13)
  1. IRESSA [Suspect]
     Indication: NON-SMALL CELL LUNG CANCER RECURRENT
     Dosage: 250 MG DAILY PO
     Route: 048
     Dates: start: 20031206, end: 20031212
  2. NAIXAN [Concomitant]
  3. DIAZEPAM [Concomitant]
  4. GASTER [Concomitant]
  5. DIPYRIDAMOLE [Concomitant]
  6. MAGNESIUM OXIDE [Concomitant]
  7. SELBEX [Concomitant]
  8. BUFFERIN [Concomitant]
  9. THYRADIN S [Concomitant]
  10. CISPLATIN [Concomitant]
  11. NAVELBINE [Concomitant]
  12. CARBOPLATIN [Concomitant]
  13. TAXOL [Concomitant]

REACTIONS (3)
  - LUNG CONSOLIDATION [None]
  - LUNG DISORDER [None]
  - LUNG INJURY [None]
